FAERS Safety Report 25971021 (Version 1)
Quarter: 2025Q4

REPORT INFORMATION
  Report Type: Spontaneous
  Country: BR (occurrence: BR)
  Receive Date: 20251028
  Receipt Date: 20251028
  Transmission Date: 20260118
  Serious: Yes (Life-Threatening, Hospitalization, Other)
  Sender: GRIFOLS
  Company Number: BR-IGSA-BIG0038984

PATIENT
  Weight: 52 kg

DRUGS (6)
  1. GAMUNEX [Suspect]
     Active Substance: HUMAN IMMUNOGLOBULIN G
     Indication: Immunodeficiency common variable
     Dosage: 20 GRAM EVERY 6 MONTHS
     Route: 042
     Dates: start: 20250819, end: 20250819
  2. BUDESONIDE\FORMOTEROL FUMARATE [Concomitant]
     Active Substance: BUDESONIDE\FORMOTEROL FUMARATE
     Dosage: 6/200 MCG
  3. BUDESONIDE [Concomitant]
     Active Substance: BUDESONIDE
     Dosage: 32 MICROGRAM
     Route: 048
  4. TACROLIMUS [Concomitant]
     Active Substance: TACROLIMUS
     Dosage: UNK UNK, QD
     Route: 061
  5. FLUOXETINE [Concomitant]
     Active Substance: FLUOXETINE HYDROCHLORIDE
     Dosage: 20 MILLIGRAM, QD
     Route: 048
  6. SOMATROPIN [Concomitant]
     Active Substance: SOMATROPIN
     Dosage: 12 INTERNATIONAL UNIT

REACTIONS (3)
  - Pruritus [Recovered/Resolved]
  - Erythema [Recovered/Resolved]
  - Skin plaque [Recovered/Resolved]

NARRATIVE: CASE EVENT DATE: 20250819
